FAERS Safety Report 7115203-5 (Version None)
Quarter: 2010Q4

REPORT INFORMATION
  Report Type: 
  Country: None (occurrence: None)
  Receive Date: 20101122
  Receipt Date: 20101115
  Transmission Date: 20110411
  Serious: Yes (Other)
  Sender: FDA-Public Use
  Company Number: US-SHIRE-ALL1-2010-05238

PATIENT
  Sex: Male
  Weight: 71.655 kg

DRUGS (4)
  1. FOSRENOL [Suspect]
     Indication: HYPERPHOSPHATAEMIA
     Dosage: UNK MG, OTHER (1 TABLET WITH EACH MEAL)
     Route: 048
     Dates: start: 20100714, end: 20100101
  2. PLAVIX [Concomitant]
     Dosage: UNK, UNKNOWN
     Route: 048
  3. RENAGEL [Concomitant]
     Dosage: UNK, UNKNOWN
     Route: 048
  4. SEROQUEL [Concomitant]
     Indication: ANXIETY
     Dosage: UNK, UNKNOWN
     Route: 048

REACTIONS (11)
  - BLOOD PRESSURE INCREASED [None]
  - CHEST PAIN [None]
  - CHRONIC OBSTRUCTIVE PULMONARY DISEASE [None]
  - CONDITION AGGRAVATED [None]
  - DIZZINESS [None]
  - DYSPNOEA [None]
  - GASTROINTESTINAL DISORDER [None]
  - OPTIC ISCHAEMIC NEUROPATHY [None]
  - PNEUMONIA PRIMARY ATYPICAL [None]
  - VISUAL BRIGHTNESS [None]
  - WRONG TECHNIQUE IN DRUG USAGE PROCESS [None]
